FAERS Safety Report 8544479-2 (Version None)
Quarter: 2012Q3

REPORT INFORMATION
  Report Type: 
  Country: None (occurrence: None)
  Receive Date: 20120719
  Receipt Date: 20120719
  Transmission Date: 20120928
  Serious: Yes (Hospitalization)
  Sender: FDA-Public Use
  Company Number: None

PATIENT
  Sex: Female

DRUGS (1)
  1. PAZOPANIB [Suspect]
     Indication: ANGIOSARCOMA
     Dosage: 800 MG

REACTIONS (3)
  - NEUTROPENIA [None]
  - DYSPNOEA [None]
  - HAEMOGLOBIN DECREASED [None]
